FAERS Safety Report 10936541 (Version 1)
Quarter: 2015Q1

REPORT INFORMATION
  Report Type: Spontaneous
  Country: US (occurrence: None)
  Receive Date: 20150212
  Receipt Date: 20150212
  Transmission Date: 20150721
  Serious: No
  Sender: FDA-Public Use
  Company Number: TPA2010A06141

PATIENT
  Age: 69 Year
  Sex: Male
  Weight: 68.04 kg

DRUGS (17)
  1. MAGNESIUM OXIDE (MAGNESIUM OXIDE) [Concomitant]
     Active Substance: MAGNESIUM OXIDE
  2. VITAMIN E [Concomitant]
     Active Substance: .ALPHA.-TOCOPHEROL
  3. LOPERAMIDE (LOPERAMIDE) [Concomitant]
     Active Substance: LOPERAMIDE
  4. AMLODIPINE [Concomitant]
     Active Substance: AMLODIPINE BESYLATE
  5. REMICADE INFUSION (INFLIXIMAB) [Concomitant]
  6. AMBIEN [Concomitant]
     Active Substance: ZOLPIDEM TARTRATE
  7. AVODART [Concomitant]
     Active Substance: DUTASTERIDE
  8. K-DUR [Concomitant]
     Active Substance: POTASSIUM CHLORIDE
  9. CELEXA [Concomitant]
     Active Substance: CITALOPRAM HYDROBROMIDE
  10. COLCHICINE (COLCHICINE) [Concomitant]
     Active Substance: COLCHICINE
  11. SULFADIAZINE (SULFADIAZINE) [Concomitant]
  12. ZEMPLAR [Concomitant]
     Active Substance: PARICALCITOL
  13. FLOMAX [Concomitant]
     Active Substance: TAMSULOSIN HYDROCHLORIDE
  14. ULORIC [Suspect]
     Active Substance: FEBUXOSTAT
     Indication: GOUT
     Route: 048
     Dates: start: 201001, end: 201001
  15. VITAMIN B12 INJECTION (CYANOCOBALAMIN) [Concomitant]
  16. OPIUM 10% (OPIUM ALKALOIDS TOTAL) [Concomitant]
  17. PREDNISONE (PREDNISONE) [Concomitant]
     Active Substance: PREDNISONE

REACTIONS (13)
  - Chromatopsia [None]
  - Amnesia [None]
  - Gait disturbance [None]
  - Decreased appetite [None]
  - Dizziness [None]
  - Gout [None]
  - Joint swelling [None]
  - Nausea [None]
  - Eye discharge [None]
  - Oedema peripheral [None]
  - Vision blurred [None]
  - Condition aggravated [None]
  - Myalgia [None]

NARRATIVE: CASE EVENT DATE: 2010
